FAERS Safety Report 5802565-1 (Version None)
Quarter: 2008Q3

REPORT INFORMATION
  Report Type: 
  Country: None (occurrence: None)
  Receive Date: 20080708
  Receipt Date: 20080630
  Transmission Date: 20090109
  Serious: Yes (Other)
  Sender: FDA-Public Use
  Company Number: PHHY2008BR12830

PATIENT
  Sex: Male
  Weight: 55 kg

DRUGS (7)
  1. EXELON [Suspect]
     Indication: DEMENTIA ALZHEIMER'S TYPE
     Dosage: 1.5MG
  2. EXELON [Suspect]
     Dosage: 4.5MG
  3. EXELON [Suspect]
     Dosage: 6MG
  4. ERANZ [Concomitant]
  5. SEROQUEL [Concomitant]
     Indication: SLEEP DISORDER
  6. DRAMIN [Concomitant]
     Indication: PARAESTHESIA
  7. GINKGO BILOBA [Concomitant]
     Indication: PERIPHERAL VASCULAR DISORDER
     Dosage: 1 TABLET/DAY

REACTIONS (7)
  - EATING DISORDER [None]
  - HYPERHIDROSIS [None]
  - HYPERTENSION [None]
  - NAUSEA [None]
  - PARAESTHESIA [None]
  - SLEEP DISORDER [None]
  - VOMITING [None]
